FAERS Safety Report 26057858 (Version 1)
Quarter: 2025Q4

REPORT INFORMATION
  Report Type: Spontaneous
  Country: US (occurrence: US)
  Receive Date: 20251118
  Receipt Date: 20251118
  Transmission Date: 20260118
  Serious: No
  Sender: TARO
  Company Number: US-TARO PHARMACEUTICALS USA INC.-2025TAR00971

PATIENT

DRUGS (2)
  1. MUPIROCIN [Suspect]
     Active Substance: MUPIROCIN
     Indication: Nasal dryness
     Dosage: SMALL AMOUNT, INSIDE THE NOSE
     Route: 061
     Dates: start: 20250303, end: 20250316
  2. MUPIROCIN [Suspect]
     Active Substance: MUPIROCIN
     Indication: Sinusitis

REACTIONS (3)
  - Off label use [Unknown]
  - Inflammation [Not Recovered/Not Resolved]
  - Pain [Not Recovered/Not Resolved]

NARRATIVE: CASE EVENT DATE: 20250304
